FAERS Safety Report 25331778 (Version 1)
Quarter: 2025Q2

REPORT INFORMATION
  Report Type: Spontaneous
  Country: US (occurrence: None)
  Receive Date: 20250519
  Receipt Date: 20250519
  Transmission Date: 20250716
  Serious: No
  Sender: FDA-CTU
  Company Number: None

PATIENT

DRUGS (1)
  1. MACITENTAN\TADALAFIL [Suspect]
     Active Substance: MACITENTAN\TADALAFIL

REACTIONS (5)
  - Thirst [None]
  - Joint swelling [None]
  - Urine output decreased [None]
  - Chest discomfort [None]
  - Fatigue [None]
